FAERS Safety Report 10965140 (Version 2)
Quarter: 2015Q2

REPORT INFORMATION
  Report Type: Spontaneous
  Country: US (occurrence: US)
  Receive Date: 20150330
  Receipt Date: 20150629
  Transmission Date: 20150821
  Serious: No
  Sender: FDA-Public Use
  Company Number: US-AMGEN-USASP2015029359

PATIENT
  Age: 61 Year
  Sex: Female

DRUGS (1)
  1. ENBREL [Suspect]
     Active Substance: ETANERCEPT
     Indication: RHEUMATOID ARTHRITIS
     Dosage: UNK
     Route: 065
     Dates: start: 19981201

REACTIONS (6)
  - Inappropriate schedule of drug administration [Recovered/Resolved]
  - Foot operation [Unknown]
  - Cough [Unknown]
  - Nasopharyngitis [Unknown]
  - Injection site pain [Unknown]
  - Respiratory tract congestion [Unknown]
